FAERS Safety Report 20414733 (Version 2)
Quarter: 2022Q2

REPORT INFORMATION
  Report Type: Report from Study
  Country: US (occurrence: None)
  Receive Date: 20220202
  Receipt Date: 20220401
  Transmission Date: 20220720
  Serious: Yes (Hospitalization, Other)
  Sender: FDA-Public Use
  Company Number: US-ROCHE-3011028

PATIENT
  Age: 73 Year
  Sex: Male
  Weight: 108 kg

DRUGS (11)
  1. ATEZOLIZUMAB [Suspect]
     Active Substance: ATEZOLIZUMAB
     Indication: Adenocarcinoma of colon
     Dosage: ON DAY 1, LAST ADMINISTERED DATE 20-OCT-2021
     Route: 042
     Dates: start: 20210824, end: 20211020
  2. FLUOROURACIL [Suspect]
     Active Substance: FLUOROURACIL
     Indication: Adenocarcinoma of colon
     Dosage: ON DAY 1
     Route: 042
     Dates: end: 20211020
  3. FLUOROURACIL [Suspect]
     Active Substance: FLUOROURACIL
     Dosage: OVER 46 HOURS DAYS 1-3
     Route: 042
  4. LEUCOVORIN CALCIUM [Suspect]
     Active Substance: LEUCOVORIN CALCIUM
     Indication: Adenocarcinoma of colon
     Dosage: OVER 2 HOURS ON DAY 1
     Route: 042
     Dates: end: 20211020
  5. ELOXATIN [Suspect]
     Active Substance: OXALIPLATIN
     Indication: Adenocarcinoma of colon
     Dosage: 2 HOURS ON DAY 1
     Route: 042
     Dates: end: 20211020
  6. CITRUCEL [Concomitant]
     Active Substance: METHYLCELLULOSE (4000 MPA.S)
  7. DOXYCYCLINE [Concomitant]
     Active Substance: DOXYCYCLINE
  8. ACETAMINOPHEN [Concomitant]
     Active Substance: ACETAMINOPHEN
  9. OXYCODONE [Concomitant]
     Active Substance: OXYCODONE
  10. ROBAXIN [Concomitant]
     Active Substance: METHOCARBAMOL
  11. LIDOCAINE [Concomitant]
     Active Substance: LIDOCAINE

REACTIONS (2)
  - Diarrhoea [Recovered/Resolved]
  - Back pain [Unknown]

NARRATIVE: CASE EVENT DATE: 20211103
